FAERS Safety Report 16894997 (Version 1)
Quarter: 2019Q4

REPORT INFORMATION
  Report Type: Spontaneous
  Country: CN (occurrence: CN)
  Receive Date: 20191008
  Receipt Date: 20191008
  Transmission Date: 20200122
  Serious: Yes (Hospitalization)
  Sender: FDA-Public Use
  Company Number: CN-PFIZER INC-2019421929

PATIENT
  Age: 23 Year
  Sex: Male

DRUGS (9)
  1. VANCOMYCIN [Concomitant]
     Active Substance: VANCOMYCIN
     Indication: ANTI-INFECTIVE THERAPY
     Dosage: 1 G, 2X/DAY
     Route: 041
     Dates: start: 20180720
  2. VANCOMYCIN [Concomitant]
     Active Substance: VANCOMYCIN
     Dosage: 1 G, 3X/DAY
     Dates: start: 20180803
  3. HEPARIN [Concomitant]
     Active Substance: HEPARIN SODIUM
     Indication: ANTICOAGULANT THERAPY
     Dosage: 5000 IU, UNK
     Route: 042
     Dates: start: 201807
  4. WARFARIN [Interacting]
     Active Substance: WARFARIN
     Indication: ANTICOAGULANT THERAPY
     Dosage: 3 MG, 1X/DAY, QN
     Dates: start: 201807
  5. VANCOMYCIN [Concomitant]
     Active Substance: VANCOMYCIN
     Dosage: 1 G, 2X/DAY
     Dates: start: 201808
  6. AMIODARONE [Interacting]
     Active Substance: AMIODARONE
     Dosage: UNK
     Dates: start: 201807
  7. CILASTATIN SODIUM/IMIPENEM [Concomitant]
     Indication: ANTI-INFECTIVE THERAPY
     Dosage: 1 G, 3X/DAY
     Route: 041
     Dates: start: 20180720, end: 20180730
  8. VORICONAZOLE. [Suspect]
     Active Substance: VORICONAZOLE
     Indication: ANTI-INFECTIVE THERAPY
     Dosage: 200 MG, 2X/DAY
     Route: 048
     Dates: start: 201807
  9. MEROPENEM. [Concomitant]
     Active Substance: MEROPENEM
     Dosage: UNK
     Dates: start: 20180730

REACTIONS (2)
  - International normalised ratio increased [Recovered/Resolved]
  - Drug interaction [Recovered/Resolved]

NARRATIVE: CASE EVENT DATE: 20180730
